FAERS Safety Report 21186367 (Version 1)
Quarter: 2022Q3

REPORT INFORMATION
  Report Type: Spontaneous
  Country: AU (occurrence: AU)
  Receive Date: 20220808
  Receipt Date: 20220808
  Transmission Date: 20221026
  Serious: Yes (Other)
  Sender: FDA-Public Use
  Company Number: AU-SCILEX PHARMACEUTICALS INC.-2022SCX00025

PATIENT
  Age: 2 Year
  Sex: Male
  Weight: 12.5 kg

DRUGS (5)
  1. LIDOCAINE [Suspect]
     Active Substance: LIDOCAINE
     Indication: Pain prophylaxis
     Dosage: UNK, ONCE
     Route: 042
  2. CANNABIDIOL [Concomitant]
     Active Substance: CANNABIDIOL
     Indication: Seizure prophylaxis
     Route: 065
  3. VALPROATE SODIUM [Concomitant]
     Active Substance: VALPROATE SODIUM
     Indication: Seizure prophylaxis
     Route: 065
  4. CLOBAZAM [Concomitant]
     Active Substance: CLOBAZAM
     Indication: Seizure prophylaxis
     Route: 065
  5. STIRIPENTOL [Concomitant]
     Active Substance: STIRIPENTOL
     Indication: Seizure prophylaxis
     Route: 065

REACTIONS (1)
  - Seizure [Recovered/Resolved]
